FAERS Safety Report 20229073 (Version 1)
Quarter: 2021Q4

REPORT INFORMATION
  Report Type: Spontaneous
  Country: US (occurrence: US)
  Receive Date: 20211225
  Receipt Date: 20211225
  Transmission Date: 20220303
  Serious: Yes (Other)
  Sender: FDA-Public Use
  Company Number: US-LUPIN PHARMACEUTICALS INC.-2021-25644

PATIENT
  Age: 30 Year
  Sex: Female

DRUGS (9)
  1. BETAMETHASONE [Suspect]
     Active Substance: BETAMETHASONE
     Indication: Maternal therapy to enhance foetal lung maturity
     Dosage: UNK
     Route: 065
  2. FENTANYL [Suspect]
     Active Substance: FENTANYL
     Indication: Epidural analgesia
     Dosage: 100 MICROGRAM, INITIALLY
     Route: 008
  3. FENTANYL [Suspect]
     Active Substance: FENTANYL
     Dosage: 2 MCG/ML
     Route: 008
  4. METOPROLOL SUCCINATE [Suspect]
     Active Substance: METOPROLOL SUCCINATE
     Indication: Hypertrophic cardiomyopathy
     Dosage: INITIAL DOSAGE NOT STATED
     Route: 065
  5. METOPROLOL SUCCINATE [Suspect]
     Active Substance: METOPROLOL SUCCINATE
     Dosage: UNK, UPTITRATED
     Route: 065
  6. METOPROLOL SUCCINATE [Suspect]
     Active Substance: METOPROLOL SUCCINATE
     Dosage: 50 MILLIGRAM, TID
     Route: 065
  7. INDOMETHACIN [Suspect]
     Active Substance: INDOMETHACIN
     Indication: Tocolysis
     Dosage: UNK
     Route: 065
  8. MAGNESIUM SULFATE [Suspect]
     Active Substance: MAGNESIUM SULFATE
     Indication: Device occlusion
     Dosage: 4 GRAM, BOLUS
     Route: 065
  9. BUPIVACAINE [Suspect]
     Active Substance: BUPIVACAINE
     Indication: Epidural analgesia
     Dosage: 10 MILLILITER
     Route: 008

REACTIONS (2)
  - Maternal exposure during pregnancy [Unknown]
  - Premature delivery [Unknown]
